FAERS Safety Report 7728425-7 (Version None)
Quarter: 2011Q3

REPORT INFORMATION
  Report Type: 
  Country: None (occurrence: None)
  Receive Date: 20110905
  Receipt Date: 20110825
  Transmission Date: 20111222
  Serious: Yes (Hospitalization, Other)
  Sender: FDA-Public Use
  Company Number: TW-BRISTOL-MYERS SQUIBB COMPANY-15822745

PATIENT
  Age: 82 Year
  Sex: Male

DRUGS (6)
  1. BLINDED: SAXAGLIPTIN [Suspect]
     Indication: TYPE 2 DIABETES MELLITUS
     Dates: start: 20101125
  2. LANTUS [Suspect]
     Indication: TYPE 2 DIABETES MELLITUS
  3. ETHAMBUTOL [Suspect]
  4. BLINDED: PLACEBO [Suspect]
     Indication: TYPE 2 DIABETES MELLITUS
     Dates: start: 20101125
  5. GLUCOPHAGE [Suspect]
     Indication: TYPE 2 DIABETES MELLITUS
  6. NITRATES [Concomitant]

REACTIONS (3)
  - ERYTHEMA [None]
  - TUBERCULOUS PLEURISY [None]
  - PNEUMONIA [None]
